FAERS Safety Report 5871356-8 (Version None)
Quarter: 2008Q3

REPORT INFORMATION
  Report Type: 
  Country: None (occurrence: None)
  Receive Date: 20080905
  Receipt Date: 20080829
  Transmission Date: 20090109
  Serious: Yes (Other)
  Sender: FDA-Public Use
  Company Number: US-AMGEN-QUU299872

PATIENT
  Sex: Female
  Weight: 97.2 kg

DRUGS (7)
  1. ENBREL [Suspect]
     Indication: PSORIASIS
     Route: 058
     Dates: start: 20040818, end: 20080601
  2. INSULIN [Concomitant]
  3. PREMARIN [Concomitant]
  4. LISINOPRIL [Concomitant]
  5. METFORMIN HCL [Concomitant]
  6. GLIPIZIDE [Concomitant]
  7. VYTORIN [Concomitant]

REACTIONS (2)
  - RETINAL DETACHMENT [None]
  - SINUSITIS [None]
